FAERS Safety Report 21533910 (Version 1)
Quarter: 2022Q4

REPORT INFORMATION
  Report Type: Spontaneous
  Country: US (occurrence: None)
  Receive Date: 20221031
  Receipt Date: 20221031
  Transmission Date: 20230112
  Serious: Yes (Other)
  Sender: FDA-Public Use
  Company Number: None

PATIENT
  Age: 55 Year
  Sex: Male
  Weight: 99 kg

DRUGS (7)
  1. HERBALS [Suspect]
     Active Substance: HERBALS
     Indication: Euphoric mood
     Dosage: OTHER QUANTITY : 2 OUNCE(S);?OTHER FREQUENCY : NO DIRECTIONS;?
     Route: 048
     Dates: start: 20221028, end: 20221028
  2. CYMBALTA [Concomitant]
     Active Substance: DULOXETINE HYDROCHLORIDE
  3. ATORVASTATIN [Concomitant]
     Active Substance: ATORVASTATIN
  4. LUNESTA [Concomitant]
     Active Substance: ESZOPICLONE
  5. Men^s daily supplement [Concomitant]
  6. MELATONIN [Concomitant]
     Active Substance: MELATONIN
  7. VITAMIN D [Concomitant]
     Active Substance: VITAMIN D NOS

REACTIONS (4)
  - Palpitations [None]
  - Nausea [None]
  - Vomiting [None]
  - Product use in unapproved indication [None]

NARRATIVE: CASE EVENT DATE: 20221028
